FAERS Safety Report 10767598 (Version 1)
Quarter: 2015Q1

REPORT INFORMATION
  Report Type: Report from Study
  Country: US (occurrence: US)
  Receive Date: 20150205
  Receipt Date: 20150205
  Transmission Date: 20150721
  Serious: Yes (Hospitalization, Other)
  Sender: FDA-Public Use
  Company Number: US-CELGENE-USA-2014115528

PATIENT
  Age: 60 Year
  Sex: Female
  Weight: 106.69 kg

DRUGS (5)
  1. REVLIMID [Suspect]
     Active Substance: LENALIDOMIDE
     Indication: PLASMA CELL MYELOMA
     Route: 048
     Dates: start: 20140919
  2. ROMIDEPSIN [Suspect]
     Active Substance: ROMIDEPSIN
     Route: 041
     Dates: start: 20141114, end: 20141119
  3. SYNTHROID [Concomitant]
     Active Substance: LEVOTHYROXINE SODIUM
     Route: 065
  4. ROMIDEPSIN [Suspect]
     Active Substance: ROMIDEPSIN
     Indication: PLASMA CELL MYELOMA
     Route: 041
     Dates: start: 20140919
  5. REVLIMID [Suspect]
     Active Substance: LENALIDOMIDE
     Route: 048
     Dates: start: 20141114, end: 20141120

REACTIONS (5)
  - Plasma cell myeloma [Unknown]
  - Accident [Unknown]
  - Drug ineffective [Unknown]
  - Malaise [Unknown]
  - Femur fracture [Unknown]

NARRATIVE: CASE EVENT DATE: 20141120
